FAERS Safety Report 11139502 (Version 1)
Quarter: 2015Q2

REPORT INFORMATION
  Report Type: Spontaneous
  Country: US (occurrence: None)
  Receive Date: 20150526
  Receipt Date: 20150526
  Transmission Date: 20150821
  Serious: Yes (Hospitalization)
  Sender: FDA-Public Use
  Company Number: None

PATIENT
  Age: 44 Year
  Sex: Female
  Weight: 60 kg

DRUGS (1)
  1. ERIBULIN [Suspect]
     Active Substance: ERIBULIN
     Dosage: 2.3 MG D1/D8 Q 21 DAY CYC INTRAVENOUS
     Route: 042
     Dates: start: 20150420, end: 20150518

REACTIONS (12)
  - Disease progression [None]
  - Headache [None]
  - Metastases to liver [None]
  - Lumbar vertebral fracture [None]
  - Haematuria [None]
  - Neutropenia [None]
  - Pathological fracture [None]
  - Escherichia test positive [None]
  - Thrombosis [None]
  - Culture urine positive [None]
  - Dysuria [None]
  - Feeling cold [None]

NARRATIVE: CASE EVENT DATE: 20150521
